FAERS Safety Report 9741328 (Version 1)
Quarter: 2013Q4

REPORT INFORMATION
  Report Type: Spontaneous
  Country: CA (occurrence: CA)
  Receive Date: 20131209
  Receipt Date: 20131209
  Transmission Date: 20140711
  Serious: Yes (Hospitalization, Other)
  Sender: FDA-Public Use
  Company Number: CA-PFIZER INC-2013345759

PATIENT
  Age: 77 Year
  Sex: Male
  Weight: 107 kg

DRUGS (8)
  1. EFFEXOR XR [Suspect]
     Indication: DEPRESSION
     Dosage: 75 MG, 1X/DAY
     Route: 048
     Dates: start: 2013, end: 2013
  2. APO-METOPROLOL [Concomitant]
     Indication: HYPERTENSION
     Dosage: 50 MG, 1X/DAY (TWO 25 MG PILLS ONCE A DAY)
     Dates: start: 2008
  3. LIPITOR [Concomitant]
     Indication: BLOOD CHOLESTEROL INCREASED
     Dosage: 40 MG, 1X/DAY
  4. CLONAZEPAM [Concomitant]
     Dosage: 0.5 MG, 1X/DAY
  5. WELLBUTRIN SR [Concomitant]
     Dosage: 300 MG, 1X/DAY
  6. NITRO PUMP SPRAY [Concomitant]
     Dosage: 0.4 MG, AS NEEDED
  7. NITRO-DUR [Concomitant]
     Dosage: 0.4 MG, AS NEEDED
     Route: 062
  8. ASPIRIN [Concomitant]
     Dosage: 81 MG, 2X/DAY

REACTIONS (12)
  - Fall [Unknown]
  - Monoplegia [Recovered/Resolved]
  - Abasia [Unknown]
  - Dementia Alzheimer^s type [Unknown]
  - Malaise [Unknown]
  - Thinking abnormal [Unknown]
  - Movement disorder [Unknown]
  - Anger [Unknown]
  - Drug ineffective [Unknown]
  - Self esteem decreased [Unknown]
  - Anxiety [Unknown]
  - Withdrawal syndrome [Unknown]
